FAERS Safety Report 22215381 (Version 1)
Quarter: 2023Q2

REPORT INFORMATION
  Report Type: Spontaneous
  Country: GB (occurrence: GB)
  Receive Date: 20230416
  Receipt Date: 20230416
  Transmission Date: 20230722
  Serious: Yes (Other)
  Sender: FDA-Public Use
  Company Number: GB-MHRA-TPP13747601C6470157YC1657446389881

PATIENT
  Age: 60 Year
  Sex: Female
  Weight: 101 kg

DRUGS (9)
  1. NAPROXEN [Suspect]
     Active Substance: NAPROXEN
     Indication: Product used for unknown indication
     Dosage: 500 MILLIGRAM, TWO TIMES A DAY
     Route: 065
     Dates: start: 20220628
  2. TRAMADOL [Suspect]
     Active Substance: TRAMADOL
     Indication: Ill-defined disorder
     Dosage: UNK
     Route: 065
     Dates: start: 20220701
  3. ALOGLIPTIN [Concomitant]
     Active Substance: ALOGLIPTIN
     Indication: Ill-defined disorder
     Dosage: 1 DOSAGE FORM, ONCE A DAY (OD)
     Route: 065
     Dates: start: 20211214
  4. ATORVASTATIN [Concomitant]
     Active Substance: ATORVASTATIN
     Indication: Ill-defined disorder
     Dosage: 1 DOSAGE FORM, ONCE A DAY (AT NIGHT)
     Route: 065
     Dates: start: 20211214
  5. COCODAMOL [Concomitant]
     Active Substance: ACETAMINOPHEN\CODEINE PHOSPHATE
     Indication: Ill-defined disorder
     Dosage: 2 DOSAGE FORM, ONCE A DAY
     Route: 065
     Dates: start: 20220701
  6. GABAPENTIN [Concomitant]
     Active Substance: GABAPENTIN
     Indication: Ill-defined disorder
     Dosage: 1 DOSAGE FORM, 3 TIMES A DAY (ONE TABLET THREE TIMES PER DAY)
     Route: 065
     Dates: start: 20211214
  7. NAPROXEN [Concomitant]
     Active Substance: NAPROXEN
     Indication: Ill-defined disorder
     Dosage: TAKE ONE TWICE DAILY
     Route: 065
     Dates: start: 20220628
  8. NORTRIPTYLINE [Concomitant]
     Active Substance: NORTRIPTYLINE
     Indication: Ill-defined disorder
     Dosage: 3 DOSAGE FORM, ONCE A DAY (AT NIGHT)
     Route: 065
     Dates: start: 20211214
  9. OMEPRAZOLE [Concomitant]
     Active Substance: OMEPRAZOLE
     Indication: Ill-defined disorder
     Dosage: 1 DOSAGE FORM, TWO TIMES A DAY (ONE TO BE TAKEN TWICE DAILY)
     Route: 065
     Dates: start: 20211214

REACTIONS (2)
  - Contusion [Unknown]
  - Rash [Unknown]

NARRATIVE: CASE EVENT DATE: 20220710
